FAERS Safety Report 8445449-5 (Version None)
Quarter: 2012Q2

REPORT INFORMATION
  Report Type: 
  Country: None (occurrence: None)
  Receive Date: 20120618
  Receipt Date: 20120430
  Transmission Date: 20120825
  Serious: No
  Sender: FDA-Public Use
  Company Number: US-TEVA-335832USA

PATIENT
  Sex: Female

DRUGS (7)
  1. GABAPENTIN [Suspect]
  2. AMITRIPTYLINE HCL [Concomitant]
     Indication: INSOMNIA
  3. CLONAZEPAM [Concomitant]
  4. FENTORA [Suspect]
     Indication: CHEST PAIN
     Route: 002
  5. ALLOPURINOL [Concomitant]
  6. PRAMIPEXOLE DIHYDROCHLORIDE [Concomitant]
  7. EXALGOS [Concomitant]

REACTIONS (3)
  - FATIGUE [None]
  - OFF LABEL USE [None]
  - AMNESIA [None]
